FAERS Safety Report 5289757-8 (Version None)
Quarter: 2007Q2

REPORT INFORMATION
  Report Type: 
  Country: None (occurrence: None)
  Receive Date: 20070406
  Receipt Date: 20070322
  Transmission Date: 20071010
  Serious: Yes (Life-Threatening, Hospitalization)
  Sender: FDA-Public Use
  Company Number: TR-JNJFOC-20070305680

PATIENT
  Age: 75 Year
  Sex: Female
  Weight: 65 kg

DRUGS (3)
  1. REMICADE [Suspect]
     Dosage: 0-2-6 WEEKS
     Route: 042
  2. REMICADE [Suspect]
     Indication: RHEUMATOID ARTHRITIS
     Dosage: 0-2-6 WEEKS
     Route: 042
  3. PREDNOL [Concomitant]

REACTIONS (4)
  - DISSEMINATED TUBERCULOSIS [None]
  - NAUSEA [None]
  - PYREXIA [None]
  - VOMITING [None]
